FAERS Safety Report 16298826 (Version 2)
Quarter: 2019Q2

REPORT INFORMATION
  Report Type: Spontaneous
  Country: US (occurrence: US)
  Receive Date: 20190510
  Receipt Date: 20190621
  Transmission Date: 20190711
  Serious: No
  Sender: FDA-Public Use
  Company Number: US-BEH-2019102215

PATIENT
  Age: 63 Year
  Sex: Female

DRUGS (2)
  1. HIZENTRA [Suspect]
     Active Substance: HUMAN IMMUNOGLOBULIN G
     Indication: IMMUNODEFICIENCY COMMON VARIABLE
     Dosage: 6 GRAM, QOW
     Route: 058
     Dates: start: 20180522
  2. HIZENTRA [Suspect]
     Active Substance: HUMAN IMMUNOGLOBULIN G
     Dosage: 6 GRAM, TOT
     Route: 058
     Dates: start: 20190509, end: 20190509

REACTIONS (7)
  - Rash [Unknown]
  - Malaise [Unknown]
  - Oral pain [Unknown]
  - Sinus headache [Unknown]
  - Fatigue [Unknown]
  - Sinus congestion [Unknown]
  - Nausea [Unknown]

NARRATIVE: CASE EVENT DATE: 201905
